FAERS Safety Report 8922453 (Version 2)
Quarter: 2012Q4

REPORT INFORMATION
  Report Type: 
  Country: GT (occurrence: GT)
  Receive Date: 20121123
  Receipt Date: 20121226
  Transmission Date: 20130627
  Serious: Yes (Death, Other)
  Sender: FDA-Public Use
  Company Number: PHHY2012GT106159

PATIENT
  Age: 95 Year
  Sex: Female
  Weight: 68 kg

DRUGS (14)
  1. COMTAN [Suspect]
     Indication: PARKINSON^S DISEASE
     Dosage: 400 mg, BID
     Route: 048
     Dates: start: 20121022, end: 20121118
  2. SELEGILINE [Concomitant]
     Dosage: 5 mg, BID
  3. BIPERIDEN [Concomitant]
     Dosage: 2 mg, BID
  4. COREG [Concomitant]
  5. CLOPIDOGREL [Concomitant]
     Dosage: 75 mg, QD
  6. APROVEL [Concomitant]
     Dosage: 150 mg, QD
  7. MOTILIUM [Concomitant]
  8. RANITIDINE [Concomitant]
     Dosage: 300 mg, BID
  9. LYRICA [Concomitant]
     Dosage: 150 mg, BID
  10. SPIRIVA [Concomitant]
     Dosage: 18 ug, BID
  11. ACETAMINOPHEN [Concomitant]
     Dosage: 1 g, BID
  12. SPIRONOLACTONE [Concomitant]
     Dosage: 50 mg, QD
  13. ALPRAZOLAM [Concomitant]
     Dosage: 0.25 mg, QD
  14. PLAVIX [Concomitant]

REACTIONS (4)
  - Death [Fatal]
  - Abnormal behaviour [Recovered/Resolved]
  - Disorientation [Recovered/Resolved]
  - Aggression [Recovered/Resolved]
